FAERS Safety Report 22356685 (Version 1)
Quarter: 2023Q2

REPORT INFORMATION
  Report Type: Spontaneous
  Country: FR (occurrence: FR)
  Receive Date: 20230523
  Receipt Date: 20230523
  Transmission Date: 20230721
  Serious: Yes (Hospitalization)
  Sender: FDA-Public Use
  Company Number: None

PATIENT
  Age: 38 Year
  Sex: Male
  Weight: 137 kg

DRUGS (3)
  1. HYDROCORTISONE [Suspect]
     Active Substance: HYDROCORTISONE
     Indication: Neurosarcoidosis
     Dosage: 40MG/ DAY, 1FP
     Route: 048
     Dates: start: 20210304, end: 20220214
  2. METHOTREXATE SODIUM [Suspect]
     Active Substance: METHOTREXATE SODIUM
     Indication: Neurosarcoidosis
     Dosage: 10 MG/WEEK, IMETH 10 MG, SCORED TABLET
     Route: 048
     Dates: start: 20210304, end: 20220214
  3. INFLIXIMAB [Concomitant]
     Active Substance: INFLIXIMAB
     Indication: Neurosarcoidosis
     Dosage: 500 MG/MONTH, INFLIXIMAB ((MAMMAL/HAMSTER/CHO CELLS)), 1FP
     Route: 042
     Dates: start: 20210304

REACTIONS (1)
  - Pneumocystis jirovecii pneumonia [Recovering/Resolving]

NARRATIVE: CASE EVENT DATE: 20230222
